FAERS Safety Report 5097936-8 (Version None)
Quarter: 2006Q3

REPORT INFORMATION
  Report Type: 
  Country: None (occurrence: None)
  Receive Date: 20060905
  Receipt Date: 20060824
  Transmission Date: 20061208
  Serious: Yes (Hospitalization)
  Sender: FDA-Public Use
  Company Number: MEDI-0004869

PATIENT
  Age: 71 Year
  Sex: Male

DRUGS (3)
  1. ETHYOL [Suspect]
     Dosage: INTRAVENOUS
     Route: 042
     Dates: start: 20060704, end: 20060808
  2. REPARIL (ESCIN) [Concomitant]
  3. GOPTEN (TRANDOLAPRIL) [Concomitant]

REACTIONS (3)
  - ERYTHEMA [None]
  - ORAL MUCOSA EROSION [None]
  - SKIN EROSION [None]
